FAERS Safety Report 6880964-7 (Version None)
Quarter: 2010Q3

REPORT INFORMATION
  Report Type: 
  Country: None (occurrence: None)
  Receive Date: 20100728
  Receipt Date: 20100719
  Transmission Date: 20110219
  Serious: Yes (Other)
  Sender: FDA-Public Use
  Company Number: US-PFIZER INC-2010090732

PATIENT
  Sex: Female
  Weight: 58.957 kg

DRUGS (6)
  1. LIPITOR [Suspect]
     Indication: BLOOD CHOLESTEROL INCREASED
     Dosage: 80 MG, DAILY
     Route: 048
  2. AMLODIPINE [Concomitant]
     Indication: BLOOD PRESSURE INCREASED
     Dosage: UNK
  3. LISINOPRIL [Concomitant]
     Indication: BLOOD PRESSURE INCREASED
     Dosage: UNK
  4. DILTIAZEM [Concomitant]
     Indication: BLOOD PRESSURE INCREASED
     Dosage: UNK
  5. OXYBUTYNIN [Concomitant]
     Dosage: UNK
  6. ALENDRONATE SODIUM [Concomitant]
     Dosage: UNK

REACTIONS (6)
  - BODY HEIGHT DECREASED [None]
  - CEREBROVASCULAR ACCIDENT [None]
  - DEMENTIA [None]
  - DEMENTIA ALZHEIMER'S TYPE [None]
  - DEPRESSION [None]
  - WEIGHT DECREASED [None]
